FAERS Safety Report 9984950 (Version 1)
Quarter: 2014Q1

REPORT INFORMATION
  Report Type: Report from Study
  Country: US (occurrence: US)
  Receive Date: 20140307
  Receipt Date: 20140307
  Transmission Date: 20141002
  Serious: No
  Sender: FDA-Public Use
  Company Number: US-ABBVIE-13P-163-1184463-00

PATIENT
  Age: 52 Year
  Sex: Female
  Weight: 77.18 kg

DRUGS (1)
  1. HUMIRA [Suspect]
     Indication: CROHN^S DISEASE
     Route: 058
     Dates: start: 200910

REACTIONS (5)
  - Rhinorrhoea [Recovering/Resolving]
  - Paranasal sinus hypersecretion [Recovering/Resolving]
  - Nasal discharge discolouration [Recovering/Resolving]
  - Incorrect drug administration duration [Unknown]
  - Cough [Recovering/Resolving]
